FAERS Safety Report 9639969 (Version 1)
Quarter: 2013Q4

REPORT INFORMATION
  Report Type: Spontaneous
  Country: US (occurrence: None)
  Receive Date: 20131021
  Receipt Date: 20131021
  Transmission Date: 20140711
  Serious: No
  Sender: FDA-Public Use
  Company Number: None

PATIENT
  Age: 62 Year
  Sex: Male
  Weight: 104.33 kg

DRUGS (7)
  1. CVS ACID REDUCER [Suspect]
     Indication: GASTROOESOPHAGEAL REFLUX DISEASE
     Dosage: 150MG, 1 TABLET, 2XDAY, MOUTH
     Route: 048
     Dates: start: 20130924, end: 20130928
  2. ZOCOR [Concomitant]
  3. LEXAPRO [Concomitant]
  4. ALLOPURINOL [Concomitant]
  5. MULTI VITAMINS [Concomitant]
  6. VITAMIN C [Concomitant]
  7. OSTEOBIFLEX [Concomitant]

REACTIONS (2)
  - Dyspepsia [None]
  - Product substitution issue [None]
